FAERS Safety Report 8370072-0 (Version None)
Quarter: 2012Q2

REPORT INFORMATION
  Report Type: 
  Country: None (occurrence: None)
  Receive Date: 20120518
  Receipt Date: 20120517
  Transmission Date: 20120825
  Serious: Yes (Hospitalization, Other)
  Sender: FDA-Public Use
  Company Number: OM-PFIZER INC-2012115366

PATIENT
  Age: 28 Year
  Sex: Female
  Weight: 37 kg

DRUGS (7)
  1. TACROLIMUS [Suspect]
     Dosage: 4 MG, 2X/DAY
  2. RIFAMPIN [Interacting]
     Indication: TUBERCULOSIS
     Dosage: 300 MG, 1X/DAY
  3. PREDNISOLONE [Suspect]
     Dosage: 10 MG, 1X/DAY
  4. MYCOPHENOLATE MOFETIL [Interacting]
     Indication: IMMUNOSUPPRESSION
     Dosage: 750 MG, 2X/DAY
  5. TACROLIMUS [Suspect]
     Indication: IMMUNOSUPPRESSION
     Dosage: 2.5 MG, 2X/DAY
  6. PREDNISOLONE [Suspect]
     Indication: IMMUNOSUPPRESSION
     Dosage: 7.5 MG, 1X/DAY
  7. TACROLIMUS [Suspect]
     Dosage: 2 MG, 1X/DAY

REACTIONS (4)
  - PULMONARY TUBERCULOSIS [None]
  - IMMUNOSUPPRESSION [None]
  - DRUG INTERACTION [None]
  - TUBERCULOSIS GASTROINTESTINAL [None]
